FAERS Safety Report 20025641 (Version 1)
Quarter: 2021Q4

REPORT INFORMATION
  Report Type: Spontaneous
  Country: CA (occurrence: CA)
  Receive Date: 20211102
  Receipt Date: 20211102
  Transmission Date: 20220304
  Serious: Yes (Other)
  Sender: FDA-Public Use
  Company Number: CA-PFIZER INC-202101404082

PATIENT
  Age: 67 Year
  Sex: Male

DRUGS (4)
  1. FLUDARABINE PHOSPHATE [Suspect]
     Active Substance: FLUDARABINE PHOSPHATE
     Indication: Chronic lymphocytic leukaemia
     Dosage: UNK, CYCLIC (1 CYCLE)
     Dates: start: 201809
  2. CYCLOPHOSPHAMIDE [Suspect]
     Active Substance: CYCLOPHOSPHAMIDE
     Indication: Chronic lymphocytic leukaemia
     Dosage: UNK, CYCLIC (1 CYCLE)
     Dates: start: 201809
  3. RITUXIMAB [Suspect]
     Active Substance: RITUXIMAB
     Indication: Chronic lymphocytic leukaemia
     Dosage: 450 MG ( 3 INFUSIONS)
     Dates: start: 20180912
  4. RITUXIMAB [Suspect]
     Active Substance: RITUXIMAB
     Indication: Aplastic anaemia

REACTIONS (1)
  - Aplastic anaemia [Unknown]
